FAERS Safety Report 6166685-7 (Version None)
Quarter: 2009Q2

REPORT INFORMATION
  Report Type: 
  Country: None (occurrence: None)
  Receive Date: 20090423
  Receipt Date: 20090423
  Transmission Date: 20091009
  Serious: Yes (Life-Threatening, Other)
  Sender: FDA-Public Use
  Company Number: None

PATIENT
  Age: 44 Year
  Sex: Female
  Weight: 52.1637 kg

DRUGS (1)
  1. LEUPROLIDE ACETATE [Suspect]
     Indication: INFERTILITY
     Dosage: 12 -- 20 UNITS PER DAY 12 DAYS SQ
     Route: 058
     Dates: start: 20081122, end: 20081209

REACTIONS (10)
  - ALOPECIA [None]
  - BONE PAIN [None]
  - CARDIAC MURMUR [None]
  - MEMORY IMPAIRMENT [None]
  - MENSTRUAL DISORDER [None]
  - OFF LABEL USE [None]
  - PALPITATIONS [None]
  - PARAESTHESIA [None]
  - THINKING ABNORMAL [None]
  - WEIGHT INCREASED [None]
